FAERS Safety Report 5285077-6 (Version None)
Quarter: 2007Q2

REPORT INFORMATION
  Report Type: 
  Country: None (occurrence: None)
  Receive Date: 20070403
  Receipt Date: 20070322
  Transmission Date: 20071010
  Serious: Yes (Other)
  Sender: FDA-Public Use
  Company Number: US-PFIZER INC-2007023941

PATIENT
  Sex: Female
  Weight: 62.1 kg

DRUGS (4)
  1. LYRICA [Suspect]
     Indication: PAIN
  2. MAXZIDE [Concomitant]
  3. ACETYLSALICYLIC ACID SRT [Concomitant]
  4. HYDROCODONE [Concomitant]

REACTIONS (4)
  - ARRHYTHMIA [None]
  - CARDIAC FLUTTER [None]
  - VISION BLURRED [None]
  - WEIGHT DECREASED [None]
